FAERS Safety Report 4732643-X (Version None)
Quarter: 2005Q3

REPORT INFORMATION
  Report Type: 
  Country: None (occurrence: None)
  Receive Date: 20050803
  Receipt Date: 20050726
  Transmission Date: 20060218
  Serious: Yes (Hospitalization)
  Sender: FDA-Public Use
  Company Number: US-KINGPHARMUSA00001-K200501008

PATIENT
  Age: 58 Year
  Sex: Male

DRUGS (11)
  1. ALTACE [Suspect]
     Dosage: 10 MG, QD
     Route: 048
     Dates: end: 20041123
  2. ALTACE [Suspect]
     Dosage: 5 MG, QD
     Route: 048
     Dates: start: 20041124
  3. AVANDAMET [Suspect]
     Indication: DIABETES MELLITUS NON-INSULIN-DEPENDENT
     Dosage: 500/2 MG, BID
     Route: 048
     Dates: start: 20041118, end: 20041123
  4. AVANDAMET [Suspect]
     Dosage: 1/2 500/2MG , BID
     Route: 048
     Dates: start: 20041124, end: 20050118
  5. AVANDAMET [Suspect]
     Dosage: 1/2 500/2MG, BID
     Route: 048
     Dates: start: 20050101, end: 20050610
  6. AVANDIA [Suspect]
     Indication: DIABETES MELLITUS NON-INSULIN-DEPENDENT
     Dosage: 4 MG, QD
     Route: 048
     Dates: start: 20050610
  7. METFORMIN HCL [Suspect]
     Indication: DIABETES MELLITUS NON-INSULIN-DEPENDENT
     Dosage: 250 MG, BID
     Dates: start: 20050610, end: 20050621
  8. METFORMIN HCL [Suspect]
     Dosage: 500 MG, BID
     Route: 048
     Dates: start: 20050622
  9. ASPIRIN [Concomitant]
  10. ATORVASTATIN CALCIUM [Concomitant]
  11. PLAVIX [Concomitant]

REACTIONS (4)
  - DIZZINESS [None]
  - HYPERGLYCAEMIA [None]
  - HYPOTENSION [None]
  - MYOCARDIAL INFARCTION [None]
